FAERS Safety Report 11742128 (Version 1)
Quarter: 2015Q4

REPORT INFORMATION
  Report Type: Spontaneous
  Country: US (occurrence: US)
  Receive Date: 20151116
  Receipt Date: 20151116
  Transmission Date: 20160304
  Serious: No
  Sender: FDA-Public Use
  Company Number: US-ACTELION PHARMACEUTICALS US, INC.-A-NJ2014-96118

PATIENT
  Age: 48 Year
  Sex: Female

DRUGS (3)
  1. LETAIRIS [Concomitant]
     Active Substance: AMBRISENTAN
  2. REMODULIN [Concomitant]
     Active Substance: TREPROSTINIL
  3. TRACLEER [Suspect]
     Active Substance: BOSENTAN
     Indication: PULMONARY ARTERIAL HYPERTENSION
     Dosage: UNK
     Route: 048

REACTIONS (10)
  - Groin pain [Unknown]
  - Injection site swelling [Unknown]
  - Arthralgia [Unknown]
  - Malaise [Unknown]
  - Feeling jittery [Unknown]
  - Erythema [Unknown]
  - Pain in extremity [Unknown]
  - Breast pain [Unknown]
  - Injection site pain [Unknown]
  - Axillary pain [Unknown]
